FAERS Safety Report 16628240 (Version 2)
Quarter: 2019Q3

REPORT INFORMATION
  Report Type: Spontaneous
  Country: BR (occurrence: BR)
  Receive Date: 20190724
  Receipt Date: 20190731
  Transmission Date: 20191004
  Serious: Yes (Hospitalization)
  Sender: FDA-Public Use
  Company Number: BR-ANIPHARMA-2019-BR-000045

PATIENT
  Age: 54 Year
  Sex: Female

DRUGS (1)
  1. ATACAND [Suspect]
     Active Substance: CANDESARTAN CILEXETIL
     Indication: PRODUCT USED FOR UNKNOWN INDICATION
     Dosage: 8 MG UNK
     Route: 048
     Dates: start: 20190307

REACTIONS (6)
  - Oedema [Recovered/Resolved]
  - Hypernatraemia [Unknown]
  - Renal impairment [Recovered/Resolved]
  - Swelling [Recovered/Resolved]
  - Blood pressure increased [Unknown]
  - Dysuria [Recovered/Resolved]

NARRATIVE: CASE EVENT DATE: 2019
